FAERS Safety Report 8523092-7 (Version None)
Quarter: 2012Q3

REPORT INFORMATION
  Report Type: 
  Country: None (occurrence: None)
  Receive Date: 20120720
  Receipt Date: 20120717
  Transmission Date: 20120928
  Serious: No
  Sender: FDA-Public Use
  Company Number: US-PFIZER INC-2012173355

PATIENT
  Sex: Female

DRUGS (1)
  1. SUTENT [Suspect]
     Indication: RENAL DISORDER
     Dosage: 37.5 MG, DAILY

REACTIONS (2)
  - ORAL PAIN [None]
  - OROPHARYNGEAL PAIN [None]
